FAERS Safety Report 16855456 (Version 1)
Quarter: 2019Q3

REPORT INFORMATION
  Report Type: Spontaneous
  Country: US (occurrence: US)
  Receive Date: 20190805
  Receipt Date: 20190805
  Transmission Date: 20191005
  Serious: No
  Sender: FDA-Public Use
  Company Number: None

PATIENT

DRUGS (3)
  1. CALCIUM [Concomitant]
     Active Substance: CALCIUM
  2. THYROID [Concomitant]
     Active Substance: LEVOTHYROXINE\LIOTHYRONINE
  3. AUROBINDO RAMIPRIL 1.25MG CAPSULES [Suspect]
     Active Substance: RAMIPRIL
     Indication: BLOOD PRESSURE MEASUREMENT
     Route: 048
     Dates: start: 201903, end: 201907

REACTIONS (4)
  - Nausea [None]
  - Dizziness [None]
  - Dyspepsia [None]
  - Product substitution issue [None]

NARRATIVE: CASE EVENT DATE: 201903
